FAERS Safety Report 15534256 (Version 1)
Quarter: 2018Q4

REPORT INFORMATION
  Report Type: Spontaneous
  Country: US (occurrence: US)
  Receive Date: 20181015
  Receipt Date: 20181015
  Transmission Date: 20190205
  Serious: Yes (Hospitalization)
  Sender: FDA-Public Use
  Company Number: None

PATIENT
  Age: 65 Year
  Sex: Female
  Weight: 59 kg

DRUGS (3)
  1. TAXOL [Suspect]
     Active Substance: PACLITAXEL
     Dates: end: 20180921
  2. DOXORUBICIN HYDROCHLORIDE. [Suspect]
     Active Substance: DOXORUBICIN HYDROCHLORIDE
     Dates: end: 20180618
  3. CYCLOPHOSPHAMIDE. [Suspect]
     Active Substance: CYCLOPHOSPHAMIDE
     Dates: end: 20180618

REACTIONS (9)
  - Cough [None]
  - Dyspnoea [None]
  - Malaise [None]
  - Hypotension [None]
  - Fatigue [None]
  - Human rhinovirus test positive [None]
  - Pleural effusion [None]
  - Hypophagia [None]
  - Pyrexia [None]

NARRATIVE: CASE EVENT DATE: 20180929
